FAERS Safety Report 7780616-5 (Version None)
Quarter: 2011Q3

REPORT INFORMATION
  Report Type: 
  Country: None (occurrence: None)
  Receive Date: 20110927
  Receipt Date: 20101023
  Transmission Date: 20111222
  Serious: No
  Sender: FDA-Public Use
  Company Number: US-BRISTOL-MYERS SQUIBB COMPANY-15332646

PATIENT
  Age: 79 Year
  Sex: Female

DRUGS (1)
  1. AVAPRO [Suspect]
     Indication: HYPERTENSION
     Dosage: 1DF: 1 UNITS NOT SPECIFIED, REFILLS ON 19JUN2010, 15JUL2010, 11AUG2010
     Route: 048

REACTIONS (1)
  - BLOOD PRESSURE INCREASED [None]
